FAERS Safety Report 7291057-1 (Version None)
Quarter: 2011Q1

REPORT INFORMATION
  Report Type: 
  Country: None (occurrence: None)
  Receive Date: 20110214
  Receipt Date: 20110202
  Transmission Date: 20110831
  Serious: Yes (Hospitalization)
  Sender: FDA-Public Use
  Company Number: IT-JNJFOC-20110202087

PATIENT
  Sex: Male
  Weight: 43.6 kg

DRUGS (5)
  1. AMINO ACID INJ [Concomitant]
  2. IRON [Concomitant]
     Route: 048
  3. REMICADE [Suspect]
     Indication: INFLAMMATORY BOWEL DISEASE
     Route: 042
  4. AZATHIOPRINE [Concomitant]
  5. PANTOPRAZOLE [Concomitant]

REACTIONS (1)
  - ILEAL STENOSIS [None]
